FAERS Safety Report 21335932 (Version 2)
Quarter: 2022Q3

REPORT INFORMATION
  Report Type: Spontaneous
  Country: US (occurrence: US)
  Receive Date: 20220915
  Receipt Date: 20220926
  Transmission Date: 20221027
  Serious: Yes (Death)
  Sender: FDA-Public Use
  Company Number: US-JNJFOC-20220917057

PATIENT
  Age: 65 Year
  Sex: Female

DRUGS (4)
  1. DARATUMUMAB [Suspect]
     Active Substance: DARATUMUMAB
     Indication: Plasma cell myeloma
     Route: 041
     Dates: start: 201904, end: 20200609
  2. POMALIDOMIDE [Suspect]
     Active Substance: POMALIDOMIDE
     Indication: Plasma cell myeloma
     Route: 065
     Dates: start: 201904, end: 20200609
  3. DEXAMETHASONE [Suspect]
     Active Substance: DEXAMETHASONE
     Indication: Plasma cell myeloma
     Route: 065
     Dates: start: 201904, end: 20200609
  4. ASPIRIN [Concomitant]
     Active Substance: ASPIRIN
     Indication: Pulmonary embolism

REACTIONS (1)
  - Leukoencephalopathy [Fatal]

NARRATIVE: CASE EVENT DATE: 20191201
